FAERS Safety Report 9462140 (Version 2)
Quarter: 2013Q4

REPORT INFORMATION
  Report Type: Spontaneous
  Country: US (occurrence: US)
  Receive Date: 20130816
  Receipt Date: 20131121
  Transmission Date: 20140711
  Serious: Yes (Hospitalization)
  Sender: FDA-Public Use
  Company Number: US-BAYER-2013-097390

PATIENT
  Age: 40 Year
  Sex: Female
  Weight: 81.63 kg

DRUGS (1)
  1. YASMIN [Suspect]
     Dosage: UNK
     Dates: start: 200310, end: 200311

REACTIONS (2)
  - Deep vein thrombosis [None]
  - Vaginal haemorrhage [None]
